FAERS Safety Report 13185227 (Version 1)
Quarter: 2017Q1

REPORT INFORMATION
  Report Type: Report from Study
  Country: BR (occurrence: BR)
  Receive Date: 20170203
  Receipt Date: 20170203
  Transmission Date: 20170428
  Serious: Yes (Other)
  Sender: FDA-Public Use
  Company Number: PHHY2017BR015407

PATIENT
  Sex: Male
  Weight: 25.5 kg

DRUGS (3)
  1. RITALIN LA [Suspect]
     Active Substance: METHYLPHENIDATE HYDROCHLORIDE
     Dosage: 1 DF, QD (IN THE AFTERNOON)
     Route: 065
  2. RITALIN LA [Suspect]
     Active Substance: METHYLPHENIDATE HYDROCHLORIDE
     Indication: PRODUCT USED FOR UNKNOWN INDICATION
     Dosage: 0.5 DF, BID (HALF A TABLET IN THE MORNING AND HALF IN THE AFTERNOON)
     Route: 065
  3. RITALIN [Suspect]
     Active Substance: METHYLPHENIDATE HYDROCHLORIDE
     Indication: ATTENTION DEFICIT/HYPERACTIVITY DISORDER
     Dosage: 10 MG, QD
     Route: 048
     Dates: start: 201508, end: 201512

REACTIONS (9)
  - Bone disorder [Unknown]
  - Social (pragmatic) communication disorder [Unknown]
  - Weight decreased [Unknown]
  - Agitation [Unknown]
  - Anaemia [Recovered/Resolved]
  - Wrong technique in product usage process [Unknown]
  - Logorrhoea [Unknown]
  - Drug ineffective [Unknown]
  - Bone density decreased [Unknown]
